FAERS Safety Report 5194645-1 (Version None)
Quarter: 2006Q4

REPORT INFORMATION
  Report Type: 
  Country: None (occurrence: None)
  Receive Date: 20061222
  Receipt Date: 20061222
  Transmission Date: 20070319
  Serious: Yes (Other)
  Sender: FDA-Public Use
  Company Number: None

PATIENT
  Age: 64 Year
  Sex: Female
  Weight: 86.1834 kg

DRUGS (1)
  1. ALLEGRA [Suspect]
     Dosage: 1 QD

REACTIONS (2)
  - MALAISE [None]
  - URTICARIA [None]
